FAERS Safety Report 4339578-5 (Version None)
Quarter: 2004Q1

REPORT INFORMATION
  Report Type: 
  Country: None (occurrence: None)
  Receive Date: 20040329
  Receipt Date: 20031231
  Transmission Date: 20041129
  Serious: No
  Sender: FDA-Public Use
  Company Number: 04P-163-0246542-00

PATIENT
  Sex: Female

DRUGS (6)
  1. HUMIRA [Suspect]
     Indication: RHEUMATOID ARTHRITIS
     Dosage: 40 MG, 1 IN 2 WK, SUBCUTANEOUS
     Route: 058
     Dates: start: 20031201
  2. CELECOXIB [Concomitant]
  3. SULFASALAZINE [Concomitant]
  4. FAMOTIDINE [Concomitant]
  5. ALPRAZOLAM [Concomitant]
  6. IRON [Concomitant]

REACTIONS (1)
  - RASH MACULAR [None]
